FAERS Safety Report 4511512-4 (Version None)
Quarter: 2004Q4

REPORT INFORMATION
  Report Type: 
  Country: None (occurrence: None)
  Receive Date: 20041129
  Receipt Date: 20040908
  Transmission Date: 20050328
  Serious: No
  Sender: FDA-Public Use
  Company Number: US-BRISTOL-MYERS SQUIBB COMPANY-12695052

PATIENT
  Age: 34 Year
  Sex: Male

DRUGS (3)
  1. ABILIFY [Suspect]
     Indication: SCHIZOPHRENIA
     Dosage: STARTED ON 08-JUN-2004 AT 10 MG; INCREASED TO 15 MG ON 27-JUL-2004.
     Route: 048
     Dates: start: 20040608
  2. HALDOL [Concomitant]
     Dates: start: 19970814
  3. TRAZODONE HCL [Concomitant]
     Dosage: 50 MG TO 100 MG QHS.
     Route: 048
     Dates: start: 20030923

REACTIONS (4)
  - ALANINE AMINOTRANSFERASE INCREASED [None]
  - ASPARTATE AMINOTRANSFERASE INCREASED [None]
  - BLOOD CHOLESTEROL INCREASED [None]
  - WEIGHT DECREASED [None]
